FAERS Safety Report 7466463-2 (Version None)
Quarter: 2011Q2

REPORT INFORMATION
  Report Type: 
  Country: None (occurrence: None)
  Receive Date: 20110509
  Receipt Date: 20110503
  Transmission Date: 20111010
  Serious: Yes (Other)
  Sender: FDA-Public Use
  Company Number: GB-TEVA-279628ISR

PATIENT
  Age: 35 Year
  Sex: Male

DRUGS (4)
  1. DIAZEPAM [Suspect]
  2. CLOZAPINE [Suspect]
     Route: 048
     Dates: start: 20100803, end: 20110401
  3. ETHANOL [Suspect]
  4. CLOZAPINE [Suspect]
     Route: 048
     Dates: start: 20110418

REACTIONS (7)
  - ALCOHOL INTERACTION [None]
  - DYSPHAGIA [None]
  - GENERAL PHYSICAL HEALTH DETERIORATION [None]
  - RENAL FAILURE ACUTE [None]
  - CIRCULATORY COLLAPSE [None]
  - DRUG INTERACTION [None]
  - MULTIPLE DRUG OVERDOSE [None]
